FAERS Safety Report 4567697-7 (Version None)
Quarter: 2005Q1

REPORT INFORMATION
  Report Type: 
  Country: None (occurrence: None)
  Receive Date: 20050114
  Receipt Date: 20050114
  Transmission Date: 20050727
  Serious: Yes (Other)
  Sender: FDA-Public Use
  Company Number: None

PATIENT
  Age: 15 Year
  Sex: Female

DRUGS (8)
  1. ZANTAC 150 [Suspect]
     Indication: GASTROOESOPHAGEAL REFLUX DISEASE
     Dosage: ONE BID
     Dates: start: 20020101, end: 20030101
  2. ADDERALL [Concomitant]
  3. SKELAXIN [Concomitant]
  4. METHADOSE [Concomitant]
  5. OXYCODONE HCL [Concomitant]
  6. CYPROHEPTADINE HCL [Concomitant]
  7. ALBUTEROL [Concomitant]
  8. LEXAPRO [Concomitant]

REACTIONS (1)
  - DRUG INEFFECTIVE [None]
